FAERS Safety Report 8334098-5 (Version None)
Quarter: 2012Q1

REPORT INFORMATION
  Report Type: 
  Country: None (occurrence: None)
  Receive Date: 20120328
  Receipt Date: 20100505
  Transmission Date: 20120608
  Serious: Yes (Hospitalization, Other)
  Sender: FDA-Public Use
  Company Number: PHHY2010US29515

PATIENT
  Age: 85 Year

DRUGS (1)
  1. VALTURNA [Suspect]
     Indication: HYPERTENSION
     Dosage: 300/320 MG, QD, ORAL
     Route: 048
     Dates: start: 20100105, end: 20100205

REACTIONS (1)
  - RENAL FAILURE CHRONIC [None]
